FAERS Safety Report 23246327 (Version 3)
Quarter: 2024Q1

REPORT INFORMATION
  Report Type: Spontaneous
  Country: CA (occurrence: CA)
  Receive Date: 20231130
  Receipt Date: 20240207
  Transmission Date: 20240410
  Serious: Yes (Other)
  Sender: FDA-Public Use
  Company Number: CA-PFIZER INC-202300401328

PATIENT
  Age: 69 Year
  Sex: Female

DRUGS (3)
  1. SULFASALAZINE [Suspect]
     Active Substance: SULFASALAZINE
     Dosage: 1 DF
  2. DICLOFENAC [Concomitant]
     Active Substance: DICLOFENAC
     Dosage: 1 DF, AS NEEDED
     Route: 065
  3. MELOXICAM [Concomitant]
     Active Substance: MELOXICAM
     Dosage: 1 DF
     Route: 065

REACTIONS (2)
  - Joint injury [Unknown]
  - Tooth disorder [Unknown]
